FAERS Safety Report 16539285 (Version 2)
Quarter: 2019Q3

REPORT INFORMATION
  Report Type: Spontaneous
  Country: US (occurrence: US)
  Receive Date: 20190708
  Receipt Date: 20190923
  Transmission Date: 20191004
  Serious: Yes (Other)
  Sender: FDA-Public Use
  Company Number: US-PFIZER INC-2019283408

PATIENT
  Age: 63 Year
  Sex: Female
  Weight: 84.82 kg

DRUGS (4)
  1. LORTAB [LORATADINE] [Concomitant]
     Active Substance: LORATADINE
     Indication: SPINAL PAIN
     Dosage: 7.5 MG, AS NEEDED [THREE TIMES DAILY USUALLY ONLY TAKES TWICE DAILY]
     Dates: start: 2016
  2. LORTAB [LORATADINE] [Concomitant]
     Active Substance: LORATADINE
     Indication: STENOSIS
  3. LYRICA [Suspect]
     Active Substance: PREGABALIN
     Indication: DIABETIC NEUROPATHY
     Dosage: 75 MG, 2X/DAY
     Route: 048
     Dates: start: 2017
  4. LORTAB [LORATADINE] [Concomitant]
     Active Substance: LORATADINE
     Indication: INTERVERTEBRAL DISC PROTRUSION

REACTIONS (2)
  - Nail disorder [Recovering/Resolving]
  - Diabetes mellitus [Recovering/Resolving]
